FAERS Safety Report 5273274-5 (Version None)
Quarter: 2007Q1

REPORT INFORMATION
  Report Type: 
  Country: None (occurrence: None)
  Receive Date: 20070319
  Receipt Date: 20070302
  Transmission Date: 20070707
  Serious: Yes (Hospitalization)
  Sender: FDA-Public Use
  Company Number: DSA_29052_2006

PATIENT
  Age: 80 Year
  Sex: Female

DRUGS (12)
  1. ENALAPRIL MALEATE [Suspect]
     Indication: HYPERTENSION
     Dosage: 20 MG QD PO
     Route: 048
     Dates: end: 20061013
  2. FOSAMAX [Suspect]
     Indication: OSTEOPOROSIS
     Dosage: VAR QWK PO
     Route: 048
     Dates: start: 20060215, end: 20061013
  3. RABEPRAZOLE SODIUM [Suspect]
     Dosage: 10 MG Q DAY PO
     Route: 048
     Dates: end: 20061013
  4. BUDESONIDE [Concomitant]
  5. CETIRIZINE HYDROCHLORIDE [Concomitant]
  6. FENOFIBRATE [Concomitant]
  7. FERROUS SO4 [Concomitant]
  8. FLUINDIONE [Concomitant]
  9. LEVOTHYROXINE /00068002/ [Concomitant]
  10. NITROGLYCERIN [Concomitant]
  11. VERAPAMIL HCL [Concomitant]
  12. ZOLPIDEM TARTRATE [Concomitant]

REACTIONS (4)
  - CULTURE URINE POSITIVE [None]
  - ESCHERICHIA INFECTION [None]
  - GENERAL PHYSICAL HEALTH DETERIORATION [None]
  - TUBULOINTERSTITIAL NEPHRITIS [None]
